FAERS Safety Report 21917622 (Version 1)
Quarter: 2023Q1

REPORT INFORMATION
  Report Type: Spontaneous
  Country: CN (occurrence: CN)
  Receive Date: 20230127
  Receipt Date: 20230127
  Transmission Date: 20230418
  Serious: Yes (Other)
  Sender: FDA-Public Use
  Company Number: CN-002147023-NVSC2023CN013959

PATIENT
  Age: 75 Year
  Sex: Male

DRUGS (3)
  1. ENTRESTO [Suspect]
     Active Substance: SACUBITRIL\VALSARTAN
     Indication: Myocardial infarction
     Dosage: 25 MG, BID
     Route: 048
     Dates: start: 20230113, end: 20230117
  2. FUROSEMIDE [Suspect]
     Active Substance: FUROSEMIDE
     Indication: Myocardial infarction
     Dosage: 20 MG, QD
     Route: 042
     Dates: start: 20230112, end: 20230117
  3. FUROSEMIDE [Suspect]
     Active Substance: FUROSEMIDE
     Indication: Myocardial infarction
     Dosage: 0.020 G, QD
     Route: 048
     Dates: start: 20230112, end: 20230112

REACTIONS (3)
  - Renal injury [Recovering/Resolving]
  - Product use in unapproved indication [Unknown]
  - Underdose [Unknown]

NARRATIVE: CASE EVENT DATE: 20230116
